FAERS Safety Report 19559501 (Version 1)
Quarter: 2021Q3

REPORT INFORMATION
  Report Type: Report from Study
  Country: None (occurrence: PR)
  Receive Date: 20210715
  Receipt Date: 20210715
  Transmission Date: 20211014
  Serious: Yes (Other)
  Sender: FDA-Public Use
  Company Number: PR-ABBVIE-21K-131-3990508-00

PATIENT
  Age: 66 Year
  Sex: Female
  Weight: 88.53 kg

DRUGS (2)
  1. HUMIRA [Suspect]
     Active Substance: ADALIMUMAB
     Dosage: 40MG/0.4ML
     Route: 058
  2. HUMIRA [Suspect]
     Active Substance: ADALIMUMAB
     Indication: RHEUMATOID ARTHRITIS
     Dosage: 40MG/0.8ML
     Route: 058
     Dates: start: 20170825

REACTIONS (1)
  - Tracheal stenosis [Recovered/Resolved]

NARRATIVE: CASE EVENT DATE: 20210712
